FAERS Safety Report 5566783-2 (Version None)
Quarter: 2007Q4

REPORT INFORMATION
  Report Type: 
  Country: None (occurrence: None)
  Receive Date: 20071219
  Receipt Date: 20071212
  Transmission Date: 20080405
  Serious: Yes (Other)
  Sender: FDA-Public Use
  Company Number: A0698885A

PATIENT
  Age: 71 Year
  Sex: Female
  Weight: 94.8 kg

DRUGS (3)
  1. LAPATINIB [Suspect]
     Indication: COLORECTAL CANCER
     Dosage: 1000MG PER DAY
     Route: 048
     Dates: start: 20071012
  2. CAPECITABINE [Suspect]
     Indication: COLORECTAL CANCER
     Dosage: 1650MG PER DAY
     Route: 048
     Dates: start: 20071008
  3. OXALIPLATIN [Suspect]
     Indication: COLORECTAL CANCER
     Dosage: 130MGM2 SINGLE DOSE

REACTIONS (1)
  - HYPOKALAEMIA [None]
